FAERS Safety Report 14418234 (Version 1)
Quarter: 2018Q1

REPORT INFORMATION
  Report Type: Spontaneous
  Country: US (occurrence: US)
  Receive Date: 20180122
  Receipt Date: 20180122
  Transmission Date: 20180509
  Serious: No
  Sender: FDA-Public Use
  Company Number: US-INTERCEPT-PMOCA2017001236

PATIENT

DRUGS (3)
  1. URSO [Concomitant]
     Active Substance: URSODIOL
     Dosage: 1000 MG, UNK
  2. COLESTYRAMINE [Concomitant]
     Active Substance: CHOLESTYRAMINE
  3. OCALIVA [Suspect]
     Active Substance: OBETICHOLIC ACID
     Indication: PRIMARY BILIARY CHOLANGITIS

REACTIONS (1)
  - Jaundice [Unknown]

NARRATIVE: CASE EVENT DATE: 2003
